FAERS Safety Report 8593806-9 (Version None)
Quarter: 2012Q3

REPORT INFORMATION
  Report Type: 
  Country: None (occurrence: None)
  Receive Date: 20120814
  Receipt Date: 20120803
  Transmission Date: 20120928
  Serious: Yes (Hospitalization)
  Sender: FDA-Public Use
  Company Number: AU-ROCHE-1082806

PATIENT
  Sex: Female

DRUGS (7)
  1. LUCENTIS [Suspect]
     Route: 050
     Dates: start: 20120423, end: 20120423
  2. ASPIRIN [Concomitant]
  3. BISOLVON [Concomitant]
  4. PERINDOPRIL ERBUMINE [Concomitant]
  5. LUCENTIS [Suspect]
     Indication: AGE-RELATED MACULAR DEGENERATION
     Route: 050
     Dates: start: 20090202
  6. NORVASC [Concomitant]
  7. NITROLINGUAL [Concomitant]
     Dosage: 1-2 SPRAY

REACTIONS (1)
  - ATRIAL FIBRILLATION [None]
